FAERS Safety Report 7250134-1 (Version None)
Quarter: 2011Q1

REPORT INFORMATION
  Report Type: 
  Country: None (occurrence: None)
  Receive Date: 20110128
  Receipt Date: 20101218
  Transmission Date: 20110831
  Serious: Yes (Hospitalization)
  Sender: FDA-Public Use
  Company Number: DK-BAYER-2010-005875

PATIENT
  Age: 31 Year
  Sex: Female

DRUGS (2)
  1. TRIPHASIL-21 [Concomitant]
     Indication: MIGRAINE
  2. MIRENA [Suspect]
     Dosage: UNK
     Dates: start: 20101201

REACTIONS (7)
  - BLISTER [None]
  - ABDOMINAL PAIN LOWER [None]
  - FLUID RETENTION [None]
  - HYPERSENSITIVITY [None]
  - PRURITUS GENERALISED [None]
  - GENITAL HAEMORRHAGE [None]
  - MOOD ALTERED [None]
